FAERS Safety Report 11469416 (Version 2)
Quarter: 2015Q3

REPORT INFORMATION
  Report Type: Report from Study
  Country: RO (occurrence: RO)
  Receive Date: 20150908
  Receipt Date: 20150921
  Transmission Date: 20151125
  Serious: Yes (Death, Life-Threatening)
  Sender: FDA-Public Use
  Company Number: RO-ABBVIE-15P-135-1434014-00

PATIENT
  Age: 53 Year
  Sex: Female

DRUGS (2)
  1. DUODOPA [Suspect]
     Active Substance: CARBIDOPA\LEVODOPA
     Indication: PARKINSON^S DISEASE
     Dosage: MD 5.5 ML, CR 3.1 ML, ED 1.5 ML
     Route: 050
     Dates: start: 20140623
  2. DUODOPA [Suspect]
     Active Substance: CARBIDOPA\LEVODOPA
     Dosage: MD 5.5, CR 2.4, ED 1.5
     Route: 050

REACTIONS (8)
  - Coma [Unknown]
  - Thrombocytopenia [Unknown]
  - Septic shock [Fatal]
  - Anger [Recovering/Resolving]
  - Hallucination, visual [Recovering/Resolving]
  - Multi-organ failure [Unknown]
  - Hallucination, auditory [Recovering/Resolving]
  - Depressed mood [Recovering/Resolving]

NARRATIVE: CASE EVENT DATE: 20150710
